FAERS Safety Report 6292234-9 (Version None)
Quarter: 2009Q3

REPORT INFORMATION
  Report Type: 
  Country: None (occurrence: None)
  Receive Date: 20090731
  Receipt Date: 20090727
  Transmission Date: 20100115
  Serious: No
  Sender: FDA-Public Use
  Company Number: PHHY2009CA16736

PATIENT
  Sex: Female

DRUGS (1)
  1. ACLASTA [Suspect]
     Indication: OSTEOPOROSIS
     Dosage: 5 MG, UNK
     Dates: start: 20080520

REACTIONS (5)
  - ARTHRALGIA [None]
  - BEDRIDDEN [None]
  - INFLUENZA LIKE ILLNESS [None]
  - JOINT SWELLING [None]
  - PAIN IN EXTREMITY [None]
